FAERS Safety Report 7447978-X (Version None)
Quarter: 2011Q2

REPORT INFORMATION
  Report Type: 
  Country: None (occurrence: None)
  Receive Date: 20110429
  Receipt Date: 20100326
  Transmission Date: 20111010
  Serious: No
  Sender: FDA-Public Use
  Company Number: US-ASTRAZENECA-2010SE13553

PATIENT
  Age: 52 Year
  Sex: Male

DRUGS (2)
  1. TOPROL-XL [Concomitant]
  2. NEXIUM [Suspect]
     Indication: DYSPEPSIA
     Route: 048
     Dates: start: 20100101

REACTIONS (2)
  - DRUG DOSE OMISSION [None]
  - DYSPEPSIA [None]
